FAERS Safety Report 21151420 (Version 1)
Quarter: 2022Q3

REPORT INFORMATION
  Report Type: Report from Study
  Country: AR (occurrence: AR)
  Receive Date: 20220730
  Receipt Date: 20220730
  Transmission Date: 20221027
  Serious: Yes (Other)
  Sender: FDA-Public Use
  Company Number: AR-NOVARTISPH-NVSC2022AR170497

PATIENT
  Sex: Female

DRUGS (1)
  1. EXFORGE [Suspect]
     Active Substance: AMLODIPINE BESYLATE\VALSARTAN
     Indication: Hypertension
     Dosage: 1 DOSAGE FORM (STARTED MORE THAN 4 YEARS AGO)
     Route: 065

REACTIONS (6)
  - Metastases to liver [Unknown]
  - Intestinal metastasis [Unknown]
  - Paraesthesia [Unknown]
  - Platelet count decreased [Unknown]
  - Decreased appetite [Recovering/Resolving]
  - Anaemia [Recovering/Resolving]
